FAERS Safety Report 5835627-3 (Version None)
Quarter: 2008Q3

REPORT INFORMATION
  Report Type: 
  Country: None (occurrence: None)
  Receive Date: 20080806
  Receipt Date: 20080806
  Transmission Date: 20090109
  Serious: Yes (Hospitalization)
  Sender: FDA-Public Use
  Company Number: PHEH1999US04293

PATIENT
  Sex: Female
  Weight: 69.4 kg

DRUGS (2)
  1. MYCOPHENOLIC ACID ERL+ [Suspect]
     Dosage: 720 MG, BID
     Route: 048
     Dates: start: 19990314
  2. NEORAL [Suspect]
     Route: 048

REACTIONS (5)
  - BLOOD CREATININE INCREASED [None]
  - CYTOMEGALOVIRUS INFECTION [None]
  - DRUG LEVEL INCREASED [None]
  - HERNIA [None]
  - OESOPHAGEAL CANDIDIASIS [None]
